FAERS Safety Report 5417791-3 (Version None)
Quarter: 2007Q3

REPORT INFORMATION
  Report Type: 
  Country: None (occurrence: None)
  Receive Date: 20070815
  Receipt Date: 20070803
  Transmission Date: 20080115
  Serious: Yes (Death, Hospitalization, Other)
  Sender: FDA-Public Use
  Company Number: 2007US001842

PATIENT
  Age: 50 Year
  Sex: Male

DRUGS (25)
  1. PROGRAF [Suspect]
     Indication: LIVER TRANSPLANT REJECTION
     Dosage: 3 MG, ORAL
     Route: 048
     Dates: start: 20060319
  2. MYCOPHENOLATE MOFETIL [Suspect]
     Indication: LIVER TRANSPLANT REJECTION
     Dosage: 1000 MG, BID, ORAL
     Route: 048
     Dates: start: 20060501, end: 20060821
  3. PREDNISONE TAB [Suspect]
     Indication: LIVER TRANSPLANT REJECTION
     Dosage: 10 MG, ORAL
     Route: 048
     Dates: start: 20060329
  4. URSODIOL (URSODEOXYCHOLIC ACID) [Concomitant]
  5. LEVOTHYROXINE SODIUM [Concomitant]
  6. FLEXERIL [Concomitant]
  7. INTRON A [Concomitant]
  8. RIBAVIRIN [Concomitant]
  9. MIDODRINE HYDROCHLORIDE [Concomitant]
  10. OCTREOTIDE ACETATE [Concomitant]
  11. EPOGEN [Concomitant]
  12. RENAGEL [Concomitant]
  13. LACTULOSE [Concomitant]
  14. VITAMIN D NOS (VITAMIN D NOS) [Concomitant]
  15. VALGANCICLOVIR HCL [Concomitant]
  16. PROTONIX [Concomitant]
  17. ATROVENT [Concomitant]
  18. CALCIUM CARBONATE [Concomitant]
  19. NEPHROCAPS (FOLIC ACID, VITAMINS NOS) [Concomitant]
  20. VANCOMYCIN HYDROCHLORIDE [Concomitant]
  21. BENADRYL (SODIUM CITRATE, AMMONIUM CHLORIDE) [Concomitant]
  22. LASIX [Concomitant]
  23. ALDACTONE (POTASSIUM CANRENOATE) [Concomitant]
  24. CEFEPIME [Concomitant]
  25. VALCYTE [Concomitant]

REACTIONS (13)
  - ANXIETY [None]
  - ASTERIXIS [None]
  - ASTHENIA [None]
  - BACTERAEMIA [None]
  - BLOOD CREATININE INCREASED [None]
  - DIARRHOEA [None]
  - DISEASE RECURRENCE [None]
  - ENTEROCOCCAL INFECTION [None]
  - EPISTAXIS [None]
  - HEPATIC ENCEPHALOPATHY [None]
  - HEPATITIS C [None]
  - INTERNATIONAL NORMALISED RATIO INCREASED [None]
  - TREMOR [None]
